FAERS Safety Report 5213174-X (Version None)
Quarter: 2007Q1

REPORT INFORMATION
  Report Type: 
  Country: None (occurrence: None)
  Receive Date: 20070119
  Receipt Date: 20070118
  Transmission Date: 20070707
  Serious: Yes (Hospitalization)
  Sender: FDA-Public Use
  Company Number: US-GLAXOSMITHKLINE-A0636151A

PATIENT
  Age: 30 Year
  Sex: Male

DRUGS (3)
  1. IMITREX [Suspect]
     Indication: MIGRAINE
     Dosage: 25MG AS REQUIRED
     Route: 048
     Dates: start: 20030101, end: 20061201
  2. COUMADIN [Concomitant]
  3. METOPROLOL SUCCINATE [Concomitant]

REACTIONS (7)
  - BLINDNESS [None]
  - BLOOD PRESSURE INCREASED [None]
  - DISABILITY [None]
  - EYE PAIN [None]
  - IMPAIRED WORK ABILITY [None]
  - PHOTOPSIA [None]
  - RETINAL ARTERY OCCLUSION [None]
